FAERS Safety Report 23353112 (Version 1)
Quarter: 2023Q4

REPORT INFORMATION
  Report Type: Spontaneous
  Country: EG (occurrence: EG)
  Receive Date: 20231230
  Receipt Date: 20231230
  Transmission Date: 20240109
  Serious: Yes (Death)
  Sender: FDA-Public Use
  Company Number: EG-PFIZER INC-PV202300207684

PATIENT
  Age: 27 Year
  Sex: Female

DRUGS (10)
  1. ENBREL [Suspect]
     Active Substance: ETANERCEPT
     Indication: Rheumatoid arthritis
     Dosage: 50 MG, WEEKLY
     Route: 058
     Dates: start: 20230920
  2. METHOTREXATE [Concomitant]
     Active Substance: METHOTREXATE
     Dosage: 50 MG, WEEKLY
     Route: 030
  3. FOLIC ACID [Concomitant]
     Active Substance: FOLIC ACID
     Dosage: 5 MG, DAILY
     Route: 048
  4. EZOGAST [Concomitant]
     Dosage: 40 MG, 1X/DAY
     Route: 048
  5. PREDNISOLONE METASULFOBENZOATE SODIUM [Concomitant]
     Active Substance: PREDNISOLONE SODIUM METAZOATE
     Dosage: 8 MG, 2X/DAY
     Route: 048
  6. DEPOVIT B12 [Concomitant]
     Dosage: ONCE EVERY 5 DAYS
  7. ETORICOXIB [Concomitant]
     Active Substance: ETORICOXIB
     Dosage: 90 MG, 1X/DAY
     Route: 048
  8. HYDROXYCHLOROQUINE SULFATE [Concomitant]
     Active Substance: HYDROXYCHLOROQUINE SULFATE
     Dosage: 200 MG, 2X/DAY
     Route: 048
  9. ASPIRIN [Concomitant]
     Active Substance: ASPIRIN
     Dosage: 100 MG, 1X/DAY
     Route: 048
  10. CALCIUM [Concomitant]
     Active Substance: CALCIUM
     Dosage: ONE TAB DAILY
     Route: 048

REACTIONS (1)
  - Death [Fatal]
